FAERS Safety Report 12219081 (Version 2)
Quarter: 2016Q2

REPORT INFORMATION
  Report Type: Spontaneous
  Country: US (occurrence: US)
  Receive Date: 20160329
  Receipt Date: 20160406
  Transmission Date: 20160815
  Serious: Yes (Hospitalization, Other)
  Sender: FDA-Public Use
  Company Number: US-GILEAD-2016-0203793

PATIENT
  Age: 69 Year
  Sex: Male
  Weight: 97.51 kg

DRUGS (7)
  1. ATORVASTATIN [Concomitant]
     Active Substance: ATORVASTATIN
     Dosage: 10 MG, UNK
     Route: 048
     Dates: start: 20151110
  2. ASPIRIN                            /00002701/ [Concomitant]
     Active Substance: ASPIRIN
     Dosage: 81 MG, UNK
     Route: 048
     Dates: start: 20150519
  3. FUROSEMIDE. [Concomitant]
     Active Substance: FUROSEMIDE
     Dosage: 40 MG, UNK
     Route: 048
     Dates: start: 20120829
  4. TADALAFIL [Concomitant]
     Active Substance: TADALAFIL
     Dosage: 40 MG, UNK
     Route: 048
     Dates: start: 20160121
  5. RIFAXIMIN [Concomitant]
     Active Substance: RIFAXIMIN
     Dosage: 200 MG, UNK
     Route: 048
     Dates: start: 20120829
  6. MULTIVITAMIN                       /00097801/ [Concomitant]
     Active Substance: VITAMINS
     Dosage: 1 TABLET, UNK
     Route: 048
  7. LETAIRIS [Suspect]
     Active Substance: AMBRISENTAN
     Indication: PULMONARY HYPERTENSION
     Dosage: 10 MG, UNK
     Route: 048
     Dates: start: 20150708

REACTIONS (3)
  - Endotracheal intubation [Recovered/Resolved]
  - Liver transplant [Recovered/Resolved]
  - Gastrointestinal tube insertion [Not Recovered/Not Resolved]

NARRATIVE: CASE EVENT DATE: 20160309
